FAERS Safety Report 4907686-3 (Version None)
Quarter: 2006Q1

REPORT INFORMATION
  Report Type: 
  Country: None (occurrence: None)
  Receive Date: 20060208
  Receipt Date: 20060208
  Transmission Date: 20060701
  Serious: Yes (Hospitalization)
  Sender: FDA-Public Use
  Company Number: None

PATIENT
  Sex: Male
  Weight: 74.5 kg

DRUGS (2)
  1. FLUOROURACIL [Suspect]
     Indication: GASTRIC CANCER
     Dosage: 4100 MG
     Dates: start: 20060123, end: 20060127
  2. LEUCOVORIN CALCIUM [Suspect]
     Dosage: 195 MG
     Dates: start: 20060123, end: 20060127

REACTIONS (6)
  - DYSPHAGIA [None]
  - EPISTAXIS [None]
  - ODYNOPHAGIA [None]
  - ORAL INTAKE REDUCED [None]
  - THERAPY NON-RESPONDER [None]
  - WEIGHT DECREASED [None]
